FAERS Safety Report 5039463-X (Version None)
Quarter: 2006Q2

REPORT INFORMATION
  Report Type: 
  Country: None (occurrence: None)
  Receive Date: 20060629
  Receipt Date: 20060620
  Transmission Date: 20061013
  Serious: Yes (Hospitalization)
  Sender: FDA-Public Use
  Company Number: US-AMGEN-US183615

PATIENT
  Age: 75 Year
  Sex: Female

DRUGS (2)
  1. SENSIPAR [Suspect]
     Indication: DRUG USE FOR UNKNOWN INDICATION
     Dates: start: 20051201, end: 20060614
  2. ZEMPLAR [Concomitant]

REACTIONS (8)
  - ASTHENIA [None]
  - CHILLS [None]
  - DIZZINESS [None]
  - DYSKINESIA [None]
  - FALL [None]
  - HALLUCINATION [None]
  - RASH [None]
  - VISION BLURRED [None]
